FAERS Safety Report 6693191-3 (Version None)
Quarter: 2010Q2

REPORT INFORMATION
  Report Type: 
  Country: None (occurrence: None)
  Receive Date: 20100422
  Receipt Date: 20100413
  Transmission Date: 20101027
  Serious: Yes (Hospitalization)
  Sender: FDA-Public Use
  Company Number: US-ELI_LILLY_AND_COMPANY-US201002007273

PATIENT
  Sex: Female
  Weight: 86.077 kg

DRUGS (11)
  1. BYETTA [Suspect]
     Indication: TYPE 2 DIABETES MELLITUS
     Dosage: 5 UG, 2/D
     Route: 058
     Dates: start: 20070823, end: 20071029
  2. BYETTA [Suspect]
     Dosage: 10 UG, 2/D
     Route: 058
     Dates: start: 20071029, end: 20091201
  3. TRILIPIX [Concomitant]
     Indication: BLOOD TRIGLYCERIDES INCREASED
     Dosage: 135 MG, UNKNOWN
     Route: 048
  4. ATENOLOL [Concomitant]
     Indication: HYPERTENSION
     Dosage: 50 MG, 2/D
     Route: 048
  5. LISINOPRIL [Concomitant]
     Indication: HYPERTENSION
     Dosage: 5 MG, DAILY (1/D)
     Route: 048
  6. DOXEPIN HCL [Concomitant]
     Dosage: 100 MG, EACH EVENING
     Route: 048
  7. LYRICA [Concomitant]
     Indication: BACK PAIN
     Dosage: 150 MG, DAILY (1/D)
     Route: 048
  8. XANAX [Concomitant]
     Indication: BACK PAIN
     Dosage: UNK, UNKNOWN
     Route: 048
  9. MORPHINE [Concomitant]
     Indication: BACK PAIN
     Dosage: 75 MG, 2/D
     Route: 048
     Dates: start: 20090201
  10. NOVOLOG [Concomitant]
     Dosage: UNK, UNKNOWN
     Route: 058
  11. ZANAFLEX [Concomitant]
     Indication: BACK PAIN

REACTIONS (2)
  - OFF LABEL USE [None]
  - PANCREATITIS [None]
